FAERS Safety Report 6219768-7 (Version None)
Quarter: 2009Q2

REPORT INFORMATION
  Report Type: 
  Country: None (occurrence: None)
  Receive Date: 20090609
  Receipt Date: 20090602
  Transmission Date: 20091009
  Serious: Yes (Hospitalization)
  Sender: FDA-Public Use
  Company Number: A0788027A

PATIENT
  Age: 35 Year
  Sex: Female

DRUGS (4)
  1. WELLBUTRIN SR [Suspect]
     Indication: DEPRESSION
     Dosage: 400MG SINGLE DOSE
     Route: 048
     Dates: start: 20000101, end: 20000101
  2. WELLBUTRIN XL [Suspect]
     Indication: DEPRESSION
     Dosage: 400MG PER DAY
     Route: 048
     Dates: start: 20030101, end: 20030101
  3. WELLBUTRIN [Suspect]
     Indication: DEPRESSION
     Dosage: 400MG PER DAY
     Route: 048
     Dates: start: 20040101, end: 20040101
  4. MOTRIN SINUS [Concomitant]

REACTIONS (10)
  - CARDIAC ABLATION [None]
  - CARDIAC DISORDER [None]
  - DRUG INEFFECTIVE [None]
  - DRUG INTOLERANCE [None]
  - FEELING ABNORMAL [None]
  - FEELING DRUNK [None]
  - NAUSEA [None]
  - PALPITATIONS [None]
  - SUPRAVENTRICULAR TACHYCARDIA [None]
  - VOMITING [None]
